FAERS Safety Report 14028163 (Version 1)
Quarter: 2017Q3

REPORT INFORMATION
  Report Type: Spontaneous
  Country: US (occurrence: US)
  Receive Date: 20170930
  Receipt Date: 20170930
  Transmission Date: 20171128
  Serious: Yes (Other)
  Sender: FDA-Public Use
  Company Number: None

PATIENT
  Sex: Female
  Weight: 74.25 kg

DRUGS (4)
  1. TERABINAFINE HCL [Suspect]
     Active Substance: TERBINAFINE HYDROCHLORIDE
     Indication: ONYCHOMYCOSIS
     Dates: start: 20150428, end: 20150504
  2. INSULIN INFUSION PUMP [Concomitant]
  3. CYMBALTA [Concomitant]
     Active Substance: DULOXETINE HYDROCHLORIDE
  4. CENTRUM [Concomitant]
     Active Substance: VITAMINS

REACTIONS (4)
  - Oral pain [None]
  - Pain [None]
  - Skin exfoliation [None]
  - Vulvovaginal burning sensation [None]

NARRATIVE: CASE EVENT DATE: 20150502
